FAERS Safety Report 21069842 (Version 1)
Quarter: 2022Q3

REPORT INFORMATION
  Report Type: Spontaneous
  Country: FR (occurrence: FR)
  Receive Date: 20220712
  Receipt Date: 20220712
  Transmission Date: 20221026
  Serious: Yes (Hospitalization, Other)
  Sender: FDA-Public Use
  Company Number: None

PATIENT
  Age: 12 Year
  Sex: Female

DRUGS (4)
  1. PROPOFOL [Suspect]
     Active Substance: PROPOFOL
     Indication: Adenotonsillectomy
     Dosage: UNKNOWN
     Route: 065
     Dates: start: 20200109, end: 20200109
  2. REMIFENTANIL HYDROCHLORIDE [Suspect]
     Active Substance: REMIFENTANIL HYDROCHLORIDE
     Indication: Adenotonsillectomy
     Dosage: UNKNOWN
     Route: 065
     Dates: start: 20200109, end: 20200109
  3. KETAMINE [Suspect]
     Active Substance: KETAMINE
     Indication: Adenotonsillectomy
     Dosage: UNKNOWN
     Route: 065
     Dates: start: 20200109, end: 20200109
  4. TRACRIUM [Suspect]
     Active Substance: ATRACURIUM BESYLATE
     Indication: Adenotonsillectomy
     Dosage: 2.5 ML (1 PER CENT), SOLUTION FOR INJECTION IN AMPOULE?0.5 MILLION PER KILOGRAM (10*6/KG)
     Route: 065
     Dates: start: 20200109, end: 20200109

REACTIONS (1)
  - Anaphylactic shock [Recovered/Resolved]

NARRATIVE: CASE EVENT DATE: 20200109
